FAERS Safety Report 5893032-8 (Version None)
Quarter: 2008Q3

REPORT INFORMATION
  Report Type: 
  Country: None (occurrence: None)
  Receive Date: 20080923
  Receipt Date: 20071025
  Transmission Date: 20090109
  Serious: No
  Sender: FDA-Public Use
  Company Number: US-ASTRAZENECA-2007UW01938

PATIENT
  Age: 18068 Day
  Sex: Female
  Weight: 142.3 kg

DRUGS (61)
  1. SEROQUEL [Suspect]
     Indication: ANXIETY
     Dosage: 25 - 200 MG
     Route: 048
     Dates: start: 20031001
  2. SEROQUEL [Suspect]
     Indication: PANIC ATTACK
     Dosage: 25 - 200 MG
     Route: 048
     Dates: start: 20031001
  3. SEROQUEL [Suspect]
     Indication: BIPOLAR DISORDER
     Dosage: 25 - 200 MG
     Route: 048
     Dates: start: 20031001
  4. SEROQUEL [Suspect]
     Route: 048
     Dates: start: 20031028
  5. SEROQUEL [Suspect]
     Route: 048
     Dates: start: 20031028
  6. SEROQUEL [Suspect]
     Route: 048
     Dates: start: 20031028
  7. SEROQUEL [Suspect]
     Route: 048
     Dates: start: 20021031
  8. SEROQUEL [Suspect]
     Route: 048
     Dates: start: 20021031
  9. SEROQUEL [Suspect]
     Route: 048
     Dates: start: 20021031
  10. SEROQUEL [Suspect]
     Route: 048
     Dates: start: 20031118
  11. SEROQUEL [Suspect]
     Route: 048
     Dates: start: 20031118
  12. SEROQUEL [Suspect]
     Route: 048
     Dates: start: 20031118
  13. SEROQUEL [Suspect]
     Route: 048
     Dates: start: 20040510
  14. SEROQUEL [Suspect]
     Route: 048
     Dates: start: 20040510
  15. SEROQUEL [Suspect]
     Route: 048
     Dates: start: 20040510
  16. SEROQUEL [Suspect]
     Route: 048
     Dates: start: 20040926
  17. SEROQUEL [Suspect]
     Route: 048
     Dates: start: 20040926
  18. SEROQUEL [Suspect]
     Route: 048
     Dates: start: 20040926
  19. SEROQUEL [Suspect]
     Route: 048
     Dates: start: 20040729
  20. SEROQUEL [Suspect]
     Route: 048
     Dates: start: 20040729
  21. SEROQUEL [Suspect]
     Route: 048
     Dates: start: 20040729
  22. SEROQUEL [Suspect]
     Route: 048
     Dates: start: 20040206
  23. SEROQUEL [Suspect]
     Route: 048
     Dates: start: 20040206
  24. SEROQUEL [Suspect]
     Route: 048
     Dates: start: 20040206
  25. SEROQUEL [Suspect]
     Route: 048
  26. SEROQUEL [Suspect]
     Route: 048
  27. SEROQUEL [Suspect]
     Route: 048
  28. SEROQUEL [Suspect]
     Route: 048
     Dates: start: 20050418
  29. SEROQUEL [Suspect]
     Route: 048
     Dates: start: 20050418
  30. SEROQUEL [Suspect]
     Route: 048
     Dates: start: 20050418
  31. SEROQUEL [Suspect]
     Route: 048
     Dates: start: 20051202
  32. SEROQUEL [Suspect]
     Route: 048
     Dates: start: 20051202
  33. SEROQUEL [Suspect]
     Route: 048
     Dates: start: 20051202
  34. SEROQUEL [Suspect]
     Route: 048
     Dates: start: 20051228
  35. SEROQUEL [Suspect]
     Route: 048
     Dates: start: 20051228
  36. SEROQUEL [Suspect]
     Route: 048
     Dates: start: 20051228
  37. LEXAPRO [Concomitant]
     Indication: DEPRESSION
     Dates: start: 20031028
  38. LEXAPRO [Concomitant]
     Dates: start: 20031118
  39. LEXAPRO [Concomitant]
     Dates: start: 20040614
  40. LEXAPRO [Concomitant]
     Dates: start: 20061130
  41. BUSPAR [Concomitant]
     Route: 048
     Dates: start: 20031028
  42. BUSPAR [Concomitant]
     Route: 048
     Dates: start: 20040903
  43. BUSPAR [Concomitant]
     Route: 048
     Dates: start: 20031118
  44. BUSPAR [Concomitant]
     Route: 048
     Dates: start: 20031118
  45. BUSPAR [Concomitant]
     Route: 048
     Dates: start: 20041013
  46. BUSPAR [Concomitant]
     Route: 048
     Dates: start: 20041013
  47. DEPAKOTE ER [Concomitant]
     Route: 048
     Dates: start: 20031007
  48. DEPAKOTE [Concomitant]
     Dates: start: 20061130
  49. DEPAKOTE [Concomitant]
     Dates: start: 20031112
  50. DEPAKOTE [Concomitant]
     Dates: start: 20031118
  51. TRAZODONE HCL [Concomitant]
     Dates: start: 20031007
  52. TRAZODONE HCL [Concomitant]
     Dates: start: 20060606
  53. ENALAPRIL MALEATE [Concomitant]
     Dates: start: 20061130
  54. VESICARE [Concomitant]
  55. DYNACIRC CR [Concomitant]
  56. METFORMIN HCL [Concomitant]
  57. PRILOSEC [Concomitant]
  58. MAXZIDE [Concomitant]
  59. FLONASE [Concomitant]
  60. ALBUTEROL [Concomitant]
  61. LOVASTATIN [Concomitant]

REACTIONS (12)
  - ARTHRALGIA [None]
  - BLOOD TRIGLYCERIDES INCREASED [None]
  - CANDIDIASIS [None]
  - CONSTIPATION [None]
  - GASTROOESOPHAGEAL REFLUX DISEASE [None]
  - HYPERLIPIDAEMIA [None]
  - MUSCULOSKELETAL PAIN [None]
  - NAUSEA [None]
  - RESPIRATORY DISORDER [None]
  - RHINITIS ALLERGIC [None]
  - TEMPOROMANDIBULAR JOINT SYNDROME [None]
  - TYPE 2 DIABETES MELLITUS [None]
